FAERS Safety Report 13094836 (Version 1)
Quarter: 2017Q1

REPORT INFORMATION
  Report Type: Spontaneous
  Country: PL (occurrence: PL)
  Receive Date: 20170106
  Receipt Date: 20170106
  Transmission Date: 20170428
  Serious: Yes (Hospitalization)
  Sender: FDA-Public Use
  Company Number: PHHY2016PL180715

PATIENT
  Age: 21 Month
  Sex: Male

DRUGS (4)
  1. CEFTAZIDIME. [Suspect]
     Active Substance: CEFTAZIDIME
     Indication: URINARY TRACT INFECTION
     Route: 065
  2. CEFUROXIME. [Suspect]
     Active Substance: CEFUROXIME
     Indication: PRODUCT USED FOR UNKNOWN INDICATION
     Route: 065
  3. AMLODIPINE [Concomitant]
     Active Substance: AMLODIPINE BESYLATE
     Indication: BLOOD PRESSURE INCREASED
     Route: 065
  4. GENTAMYCINE [Suspect]
     Active Substance: GENTAMICIN
     Indication: URINARY TRACT INFECTION
     Route: 065

REACTIONS (7)
  - Erythema [Unknown]
  - Pallor [Unknown]
  - Pyrexia [Unknown]
  - Vomiting [Unknown]
  - Oedema [Unknown]
  - Urinary incontinence [Unknown]
  - Tachycardia [Unknown]
